FAERS Safety Report 13030562 (Version 5)
Quarter: 2018Q2

REPORT INFORMATION
  Report Type: Spontaneous
  Country: US (occurrence: US)
  Receive Date: 20161215
  Receipt Date: 20180606
  Transmission Date: 20180711
  Serious: Yes (Death, Life-Threatening, Hospitalization, Other)
  Sender: FDA-Public Use
  Company Number: US-DRREDDYS-USA/USA/16/0085588

PATIENT
  Age: 53 Year
  Sex: Male

DRUGS (4)
  1. DIVALPROEX [Concomitant]
     Active Substance: DIVALPROEX SODIUM
     Indication: DEPRESSION
     Route: 065
  2. AMLODIPINE BESYLATE. [Suspect]
     Active Substance: AMLODIPINE BESYLATE
     Indication: PRODUCT USED FOR UNKNOWN INDICATION
     Route: 048
  3. TRAZODONE [Concomitant]
     Active Substance: TRAZODONE HYDROCHLORIDE
     Indication: DEPRESSION
     Route: 065
  4. RISPERIDONE. [Concomitant]
     Active Substance: RISPERIDONE
     Indication: PRODUCT USED FOR UNKNOWN INDICATION
     Route: 065

REACTIONS (10)
  - Brain injury [Fatal]
  - Suicide attempt [Unknown]
  - Brain death [Fatal]
  - Hypotension [Not Recovered/Not Resolved]
  - Acute kidney injury [Unknown]
  - Pulseless electrical activity [Unknown]
  - Intentional overdose [Unknown]
  - Cardiac arrest [Unknown]
  - Brain herniation [Unknown]
  - Bradycardia [Unknown]
